FAERS Safety Report 5157154-1 (Version None)
Quarter: 2006Q4

REPORT INFORMATION
  Report Type: 
  Country: None (occurrence: None)
  Receive Date: 20061127
  Receipt Date: 20050818
  Transmission Date: 20070319
  Serious: Yes (Death)
  Sender: FDA-Public Use
  Company Number: FR-BRISTOL-MYERS SQUIBB COMPANY-13083936

PATIENT
  Age: 71 Year
  Sex: Male

DRUGS (9)
  1. MUCOMYST [Suspect]
  2. VASTAREL [Concomitant]
  3. PRAXILENE [Concomitant]
  4. ASPIRIN [Concomitant]
  5. ZOLPIDEM TARTRATE [Concomitant]
  6. HEMIGOXINE NATIVELLE [Concomitant]
  7. LASIX [Concomitant]
  8. TRIATEC [Concomitant]
  9. NOVONORM [Concomitant]

REACTIONS (4)
  - CARDIAC FAILURE ACUTE [None]
  - CARDIAC PACEMAKER INSERTION [None]
  - MULTI-ORGAN FAILURE [None]
  - PULMONARY OEDEMA [None]
